FAERS Safety Report 10206983 (Version 1)
Quarter: 2014Q2

REPORT INFORMATION
  Report Type: Spontaneous
  Country: GB (occurrence: GB)
  Receive Date: 20140530
  Receipt Date: 20140530
  Transmission Date: 20141212
  Serious: Yes (Disabling)
  Sender: FDA-Public Use
  Company Number: GB-ROCHE-1407191

PATIENT
  Age: 50 Year
  Sex: Female
  Weight: 82.55 kg

DRUGS (9)
  1. ORLISTAT [Suspect]
     Indication: WEIGHT DECREASED
     Route: 048
  2. PIRITON [Concomitant]
  3. MEBEVERINE [Concomitant]
     Route: 065
  4. AMITRIPTYLINE [Concomitant]
     Route: 065
  5. AMLODIPIN [Concomitant]
     Route: 065
  6. BECONASE [Concomitant]
     Route: 065
  7. INDAPAMIDE [Concomitant]
     Route: 065
  8. RAMIPRIL [Concomitant]
     Route: 065
  9. ZAPAIN [Concomitant]
     Route: 065

REACTIONS (2)
  - Diarrhoea [Not Recovered/Not Resolved]
  - Irritable bowel syndrome [Not Recovered/Not Resolved]
